FAERS Safety Report 22305643 (Version 1)
Quarter: 2023Q2

REPORT INFORMATION
  Report Type: Report from Study
  Country: IT (occurrence: IT)
  Receive Date: 20230510
  Receipt Date: 20230510
  Transmission Date: 20230721
  Serious: Yes (Hospitalization, Other)
  Sender: FDA-Public Use
  Company Number: None

PATIENT
  Age: 71 Year
  Sex: Female

DRUGS (2)
  1. RIVAROXABAN [Interacting]
     Active Substance: RIVAROXABAN
     Indication: Arrhythmia prophylaxis
     Dosage: 20 MG, QD
     Route: 048
     Dates: start: 20220101, end: 20220724
  2. ASPIRIN [Interacting]
     Active Substance: ASPIRIN
     Indication: Arrhythmia prophylaxis
     Dosage: 100 MG
     Route: 048

REACTIONS (3)
  - Drug interaction [Recovered/Resolved]
  - Blood loss anaemia [Recovered/Resolved]
  - Rectal haemorrhage [Recovered/Resolved]

NARRATIVE: CASE EVENT DATE: 20220722
